FAERS Safety Report 23168198 (Version 1)
Quarter: 2023Q4

REPORT INFORMATION
  Report Type: Spontaneous
  Country: CN (occurrence: CN)
  Receive Date: 20231109
  Receipt Date: 20231109
  Transmission Date: 20240110
  Serious: Yes (Other)
  Sender: FDA-Public Use
  Company Number: None

PATIENT
  Age: 49 Year
  Sex: Female
  Weight: 65 kg

DRUGS (4)
  1. IFOSFAMIDE [Suspect]
     Active Substance: IFOSFAMIDE
     Indication: Myxofibrosarcoma
     Dosage: 1 G, ONE TIME IN ONE DAY (ST) DILUTED WITH 500 ML OF SODIUM CHLORIDE
     Route: 041
     Dates: start: 20200904, end: 20200908
  2. SODIUM CHLORIDE [Suspect]
     Active Substance: SODIUM CHLORIDE
     Indication: Medication dilution
     Dosage: 500 ML, ST USED TO DILUTE 1 G OF IFOSFAMIDE
     Route: 041
     Dates: start: 20200904, end: 20200908
  3. SODIUM CHLORIDE [Suspect]
     Active Substance: SODIUM CHLORIDE
     Dosage: 50 ML, ST USED TO DILUTE 0.1 G OF EPIRUBICIN
     Route: 041
     Dates: start: 20200904, end: 20200904
  4. EPIRUBICIN HYDROCHLORIDE [Suspect]
     Active Substance: EPIRUBICIN HYDROCHLORIDE
     Indication: Myxofibrosarcoma
     Dosage: 0.1 G, ONE TIME IN ONE DAY (ST) DILUTED WITH 50 ML OF SODIUM CHLORIDE
     Route: 041
     Dates: start: 20200904, end: 20200904

REACTIONS (1)
  - White blood cell count decreased [Unknown]

NARRATIVE: CASE EVENT DATE: 20200910
